FAERS Safety Report 17872420 (Version 2)
Quarter: 2021Q1

REPORT INFORMATION
  Report Type: Report from Study
  Country: None (occurrence: US)
  Receive Date: 20200608
  Receipt Date: 20210213
  Transmission Date: 20210419
  Serious: Yes (Death, Hospitalization)
  Sender: FDA-Public Use
  Company Number: US-ABBVIE-20P-163-3435429-00

PATIENT
  Sex: Female
  Weight: 122.58 kg

DRUGS (2)
  1. IMBRUVICA [Suspect]
     Active Substance: IBRUTINIB
     Indication: LYMPHOCYTIC LEUKAEMIA
     Route: 048
  2. IMBRUVICA [Suspect]
     Active Substance: IBRUTINIB
     Indication: NEOPLASM MALIGNANT

REACTIONS (5)
  - Cardiac disorder [Fatal]
  - Neoplasm malignant [Fatal]
  - Breast cancer [Fatal]
  - Illness [Unknown]
  - Diabetes mellitus [Fatal]
